FAERS Safety Report 11822180 (Version 2)
Quarter: 2016Q1

REPORT INFORMATION
  Report Type: Spontaneous
  Country: US (occurrence: US)
  Receive Date: 20151210
  Receipt Date: 20160202
  Transmission Date: 20160525
  Serious: No
  Sender: FDA-Public Use
  Company Number: US-JNJFOC-20150616234

PATIENT
  Sex: Female

DRUGS (16)
  1. IMBRUVICA [Suspect]
     Active Substance: IBRUTINIB
     Indication: CHRONIC LYMPHOCYTIC LEUKAEMIA
     Route: 048
     Dates: start: 20150428, end: 201505
  2. ELIQUIS [Concomitant]
     Active Substance: APIXABAN
  3. NEXIUM [Concomitant]
     Active Substance: ESOMEPRAZOLE MAGNESIUM
  4. IMBRUVICA [Suspect]
     Active Substance: IBRUTINIB
     Indication: CHRONIC LYMPHOCYTIC LEUKAEMIA
     Route: 048
     Dates: start: 201505
  5. HCTZ [Concomitant]
     Active Substance: HYDROCHLOROTHIAZIDE
  6. LEVOTHYROXINE. [Concomitant]
     Active Substance: LEVOTHYROXINE
  7. SIMVASTATIN. [Concomitant]
     Active Substance: SIMVASTATIN
  8. TRIMETHOPRIM. [Concomitant]
     Active Substance: TRIMETHOPRIM
  9. DALIRESP [Concomitant]
     Active Substance: ROFLUMILAST
  10. DIGOXIN. [Concomitant]
     Active Substance: DIGOXIN
  11. LOSARTAN. [Concomitant]
     Active Substance: LOSARTAN
  12. MONTELUKAST SODIUM. [Concomitant]
     Active Substance: MONTELUKAST SODIUM
  13. SPIRIVA [Concomitant]
     Active Substance: TIOTROPIUM BROMIDE MONOHYDRATE
  14. IMBRUVICA [Suspect]
     Active Substance: IBRUTINIB
     Indication: CHRONIC LYMPHOCYTIC LEUKAEMIA
     Dosage: DAILY
     Route: 048
  15. ACYCLOVIR. [Concomitant]
     Active Substance: ACYCLOVIR
  16. PROCHLORPERAZINE MALEATE. [Concomitant]
     Active Substance: PROCHLORPERAZINE MALEATE

REACTIONS (9)
  - Dry skin [Unknown]
  - Kidney infection [Unknown]
  - Arthralgia [Unknown]
  - Nail disorder [Unknown]
  - Stomatitis [Unknown]
  - Anosmia [Unknown]
  - Fatigue [Unknown]
  - Clostridium difficile infection [Unknown]
  - Asthenia [Unknown]

NARRATIVE: CASE EVENT DATE: 2015
